FAERS Safety Report 17171424 (Version 1)
Quarter: 2019Q4

REPORT INFORMATION
  Report Type: Spontaneous
  Country: US (occurrence: US)
  Receive Date: 20191218
  Receipt Date: 20191218
  Transmission Date: 20200122
  Serious: Yes (Other)
  Sender: FDA-Public Use
  Company Number: US-ASTRAZENECA-2019SF79305

PATIENT
  Age: 76 Year
  Sex: Male
  Weight: 102.1 kg

DRUGS (7)
  1. BRILINTA [Suspect]
     Active Substance: TICAGRELOR
     Route: 048
  2. METOPROLOL. [Suspect]
     Active Substance: METOPROLOL
     Route: 065
  3. HUMIRA [Suspect]
     Active Substance: ADALIMUMAB
     Indication: CROHN^S DISEASE
     Dosage: 40 MG, 1 IN 1-2 WEEKS
     Route: 058
     Dates: start: 201803
  4. MONTELUKAST [Concomitant]
     Active Substance: MONTELUKAST SODIUM
  5. HUMIRA [Suspect]
     Active Substance: ADALIMUMAB
     Indication: COLITIS ULCERATIVE
     Dosage: 40 MG, 1 IN 1-2 WEEKS
     Route: 058
     Dates: end: 201903
  6. HUMIRA [Suspect]
     Active Substance: ADALIMUMAB
     Indication: CROHN^S DISEASE
     Dosage: 40 MG, 1 IN 1-2 WEEKS
     Route: 058
     Dates: end: 201903
  7. HUMIRA [Suspect]
     Active Substance: ADALIMUMAB
     Indication: COLITIS ULCERATIVE
     Dosage: 40 MG, 1 IN 1-2 WEEKS
     Route: 058
     Dates: start: 201803

REACTIONS (7)
  - Throat tightness [Recovered/Resolved]
  - Arterial occlusive disease [Recovered/Resolved]
  - Drug hypersensitivity [Unknown]
  - Dyspnoea [Recovered/Resolved]
  - Injection site haemorrhage [Unknown]
  - Periorbital swelling [Recovered/Resolved]
  - Swollen tongue [Recovered/Resolved]

NARRATIVE: CASE EVENT DATE: 2019
